FAERS Safety Report 20327836 (Version 1)
Quarter: 2022Q1

REPORT INFORMATION
  Report Type: Spontaneous
  Country: US (occurrence: None)
  Receive Date: 20220111
  Receipt Date: 20220111
  Transmission Date: 20220423
  Serious: Yes (Disabling, Other)
  Sender: FDA-Public Use
  Company Number: None

PATIENT
  Age: 57 Year
  Sex: Female
  Weight: 70.65 kg

DRUGS (2)
  1. OZEMPIC [Suspect]
     Active Substance: SEMAGLUTIDE
     Indication: Blood glucose increased
     Dosage: OTHER FREQUENCY : ONCE A WEEK;?
     Route: 030
     Dates: start: 20211216, end: 20220106
  2. OZEMPIC [Suspect]
     Active Substance: SEMAGLUTIDE
     Indication: Insulin resistance

REACTIONS (8)
  - Nausea [None]
  - Vomiting [None]
  - Diarrhoea [None]
  - Abdominal distension [None]
  - Flatulence [None]
  - Weight decreased [None]
  - Job dissatisfaction [None]
  - Dehydration [None]

NARRATIVE: CASE EVENT DATE: 20220108
